FAERS Safety Report 6460864-7 (Version None)
Quarter: 2009Q4

REPORT INFORMATION
  Report Type: 
  Country: None (occurrence: None)
  Receive Date: 20091130
  Receipt Date: 20091118
  Transmission Date: 20100525
  Serious: Yes (Other)
  Sender: FDA-Public Use
  Company Number: JP-PFIZER INC-2009296632

PATIENT
  Age: 35 Year
  Sex: Male

DRUGS (2)
  1. ZITHROMAC SR [Suspect]
     Indication: NASOPHARYNGITIS
     Dosage: 2 G, 1X/DAY
     Route: 048
     Dates: start: 20091110, end: 20091110
  2. PL GRAN. [Concomitant]

REACTIONS (2)
  - CHEST DISCOMFORT [None]
  - PALPITATIONS [None]
